FAERS Safety Report 26112594 (Version 1)
Quarter: 2025Q4

REPORT INFORMATION
  Report Type: Spontaneous
  Country: GB (occurrence: GB)
  Receive Date: 20251202
  Receipt Date: 20251202
  Transmission Date: 20260117
  Serious: Yes (Hospitalization)
  Sender: ROCHE
  Company Number: GB-ROCHE-10000447381

PATIENT
  Age: 39 Year
  Sex: Male
  Weight: 78.9 kg

DRUGS (2)
  1. GLOFITAMAB [Suspect]
     Active Substance: GLOFITAMAB
     Indication: Burkitt^s lymphoma
     Route: 042
     Dates: start: 20250130, end: 20251017
  2. GLOFITAMAB [Suspect]
     Active Substance: GLOFITAMAB
     Indication: Post transplant lymphoproliferative disorder

REACTIONS (1)
  - Parvovirus infection [Recovered/Resolved]

NARRATIVE: CASE EVENT DATE: 20250831
